FAERS Safety Report 4367473-4 (Version None)
Quarter: 2004Q2

REPORT INFORMATION
  Report Type: 
  Country: None (occurrence: None)
  Receive Date: 20040520
  Receipt Date: 20040504
  Transmission Date: 20050107
  Serious: No
  Sender: FDA-Public Use
  Company Number: 601245

PATIENT
  Age: 48 Year
  Sex: Female
  Weight: 45.3597 kg

DRUGS (7)
  1. TISSEEL VH KIT [Suspect]
     Indication: PTERYGIUM OPERATION
     Dosage: 0.5 ML; ONCE; OPHTHALMIC
     Route: 047
     Dates: start: 20040421, end: 20040421
  2. PAXIL [Concomitant]
  3. PREMARIN [Concomitant]
  4. MAXITROL [Concomitant]
  5. TOBRADEX [Concomitant]
  6. VICODIN [Concomitant]
  7. AMBIEN [Concomitant]

REACTIONS (5)
  - CORNEAL EPITHELIUM DISORDER [None]
  - EYE DISORDER [None]
  - EYE SWELLING [None]
  - GRAFT COMPLICATION [None]
  - SURGICAL PROCEDURE REPEATED [None]
